FAERS Safety Report 5532799-5 (Version None)
Quarter: 2007Q4

REPORT INFORMATION
  Report Type: 
  Country: None (occurrence: None)
  Receive Date: 20071204
  Receipt Date: 20071130
  Transmission Date: 20080405
  Serious: Yes (Life-Threatening, Hospitalization)
  Sender: FDA-Public Use
  Company Number: CZ-BRISTOL-MYERS SQUIBB COMPANY-13994744

PATIENT
  Age: 38 Year
  Sex: Male

DRUGS (8)
  1. AMIKACIN SULFATE [Suspect]
     Indication: PNEUMONIA
  2. HYDROCORTISONE [Suspect]
  3. CIPROFLOXACIN [Suspect]
  4. NORADRENALINE [Suspect]
  5. AMPICILLIN SODIUM/SULBACTAM SODIUM [Suspect]
  6. CEFUROXIME [Suspect]
  7. XIGRIS [Suspect]
  8. COTRIM [Suspect]

REACTIONS (2)
  - ACUTE RESPIRATORY DISTRESS SYNDROME [None]
  - RESTLESSNESS [None]
